FAERS Safety Report 21795977 (Version 1)
Quarter: 2022Q4

REPORT INFORMATION
  Report Type: Spontaneous
  Country: DE (occurrence: DE)
  Receive Date: 20221229
  Receipt Date: 20221229
  Transmission Date: 20230113
  Serious: Yes (Hospitalization, Other)
  Sender: FDA-Public Use
  Company Number: None

PATIENT
  Age: 72 Year
  Sex: Female
  Weight: 63 kg

DRUGS (8)
  1. METHOTREXATE SODIUM [Suspect]
     Active Substance: METHOTREXATE SODIUM
     Indication: Rheumatoid arthritis
     Dosage: 15 MG, WEEKLY0-2-0, MONDAY, WEDNESDAY, FRIDAY
     Route: 048
     Dates: end: 20221202
  2. PANTOPRAZOLE SODIUM [Suspect]
     Active Substance: PANTOPRAZOLE SODIUM
     Indication: Gastrooesophageal reflux disease
     Dosage: 40 MG, 1X/DAY (1-0-0)
     Route: 048
  3. CANDESARTAN RATIOPHARM [Concomitant]
     Indication: Hypertension
     Dosage: 8 MG, 2X/DAY (1-0-1)
     Route: 048
     Dates: end: 20221202
  4. LEVOTHYROXINE SODIUM [Concomitant]
     Active Substance: LEVOTHYROXINE SODIUM
     Indication: Hypothyroidism
     Dosage: 50 UG, 1X/DAY (1-0-0)
     Route: 048
  5. METOPROLOL SUCCINATE [Concomitant]
     Active Substance: METOPROLOL SUCCINATE
     Indication: Hypertension
     Dosage: 23.75 MG, 2X/DAY (1-0-1)
     Route: 048
  6. PREDNISOLONE [Concomitant]
     Active Substance: PREDNISOLONE
     Indication: Rheumatoid arthritis
     Dosage: 2.5 MG, 2X/DAY (0.5-0-0,5)
     Route: 048
  7. FOLIC ACID [Concomitant]
     Active Substance: FOLIC ACID
     Indication: Folate deficiency
     Dosage: 5 MG, 1X/DAY (1-0-0)
     Route: 048
  8. FERROUS GLYCINE SULFATE [Concomitant]
     Active Substance: FERROUS GLYCINE SULFATE
     Dosage: 1 DF, 1X/DAY (1-0-0)
     Route: 048
     Dates: start: 20221125, end: 20221202

REACTIONS (6)
  - Hip arthroplasty [Unknown]
  - Pharyngitis [Unknown]
  - Pancytopenia [Recovering/Resolving]
  - Aphthous ulcer [Recovering/Resolving]
  - Off label use [Unknown]
  - Blood pressure decreased [Unknown]

NARRATIVE: CASE EVENT DATE: 20221107
